FAERS Safety Report 4565205-8 (Version None)
Quarter: 2005Q1

REPORT INFORMATION
  Report Type: 
  Country: None (occurrence: None)
  Receive Date: 20050127
  Receipt Date: 20050127
  Transmission Date: 20050727
  Serious: Yes (Hospitalization)
  Sender: FDA-Public Use
  Company Number: None

PATIENT
  Age: 83 Year
  Sex: Male
  Weight: 83.1 kg

DRUGS (7)
  1. WARFARIN [Suspect]
     Indication: ATRIAL FIBRILLATION
     Dosage: ORAL
     Route: 048
  2. IRBESARTAN [Concomitant]
  3. SIMVASTATIN [Concomitant]
  4. CLOPIDOGREL BISULFATE [Concomitant]
  5. METFORMIN HCL [Concomitant]
  6. OXYMETAZOLINE HCL [Concomitant]
  7. LANOXIN [Concomitant]

REACTIONS (1)
  - INTERNATIONAL NORMALISED RATIO INCREASED [None]
